FAERS Safety Report 19769735 (Version 1)
Quarter: 2021Q3

REPORT INFORMATION
  Report Type: Spontaneous
  Country: HU (occurrence: HU)
  Receive Date: 20210831
  Receipt Date: 20210831
  Transmission Date: 20211014
  Serious: Yes (Other)
  Sender: FDA-Public Use
  Company Number: HU-TEVA-2021-HU-1946659

PATIENT
  Age: 64 Year
  Sex: Male

DRUGS (8)
  1. BENFOGAMMA [Suspect]
     Active Substance: BENFOTIAMINE
     Dates: start: 20210215
  2. CAPECITABINE. [Suspect]
     Active Substance: CAPECITABINE
     Indication: COLORECTAL CANCER
     Dosage: 1000MILLIGRAM
     Route: 048
     Dates: start: 20200302, end: 20210806
  3. BEVACIZUMAB. [Suspect]
     Active Substance: BEVACIZUMAB
     Indication: COLORECTAL CANCER
     Dosage: 400MILLIGRAM
     Route: 042
     Dates: start: 20200302, end: 20210802
  4. SOLU?MEDROL [Concomitant]
     Active Substance: METHYLPREDNISOLONE SODIUM SUCCINATE
     Dosage: 80MILLIGRAM
     Route: 042
  5. ALOXI [Concomitant]
     Active Substance: PALONOSETRON HYDROCHLORIDE
     Route: 042
  6. COVEREX KOMB [Concomitant]
     Indication: HYPERTENSION
     Route: 048
  7. OXALIPLATIN. [Suspect]
     Active Substance: OXALIPLATIN
     Indication: COLORECTAL CANCER
     Dosage: 152MILLIGRAM
     Route: 042
     Dates: start: 20210215, end: 20210712
  8. MILGAMMA [Concomitant]

REACTIONS (3)
  - Neuropathy peripheral [Recovering/Resolving]
  - Urticaria [Recovering/Resolving]
  - Blister [Recovering/Resolving]
